FAERS Safety Report 16347230 (Version 2)
Quarter: 2019Q2

REPORT INFORMATION
  Report Type: Spontaneous
  Country: US (occurrence: US)
  Receive Date: 20190523
  Receipt Date: 20190523
  Transmission Date: 20190711
  Serious: Yes (Other)
  Sender: FDA-Public Use
  Company Number: US-PFIZER INC-2019209560

PATIENT
  Sex: Female

DRUGS (2)
  1. TAMOXIFEN [Interacting]
     Active Substance: TAMOXIFEN
  2. GEODON [Suspect]
     Active Substance: ZIPRASIDONE HYDROCHLORIDE\ZIPRASIDONE MESYLATE
     Dosage: UNK

REACTIONS (2)
  - Drug interaction [Unknown]
  - Neoplasm malignant [Unknown]
